FAERS Safety Report 20687680 (Version 1)
Quarter: 2022Q2

REPORT INFORMATION
  Report Type: Spontaneous
  Country: US (occurrence: US)
  Receive Date: 20220408
  Receipt Date: 20220408
  Transmission Date: 20220721
  Serious: No
  Sender: FDA-Public Use
  Company Number: US-ORGANON-O2204USA000413

PATIENT
  Age: 18 Year
  Sex: Female
  Weight: 85.714 kg

DRUGS (1)
  1. NEXPLANON [Suspect]
     Active Substance: ETONOGESTREL
     Indication: Contraception
     Dosage: 1 IMPLANT EVERY 3 YEARS, IN LEFT ARM
     Route: 059
     Dates: start: 20210524

REACTIONS (1)
  - Heavy menstrual bleeding [Unknown]

NARRATIVE: CASE EVENT DATE: 20220201
